FAERS Safety Report 8791321 (Version 2)
Quarter: 2012Q4

REPORT INFORMATION
  Report Type: 
  Country: US (occurrence: US)
  Receive Date: 20120911
  Receipt Date: 20121016
  Transmission Date: 20130627
  Serious: Yes (Hospitalization, Other)
  Sender: FDA-Public Use
  Company Number: 2012P1054824

PATIENT
  Age: 19 Year
  Sex: Male
  Weight: 74.39 kg

DRUGS (4)
  1. ZIANA [Suspect]
     Route: 061
     Dates: start: 2012
  2. SOLODYN [Suspect]
     Indication: ACNE
     Route: 048
     Dates: start: 20120410, end: 20120804
  3. BENZOYL PEROXIDE WASH (BPO) [Concomitant]
     Dates: start: 2012
  4. CLODERM [Concomitant]
     Dates: start: 2012

REACTIONS (1)
  - Hepatitis cholestatic [Not Recovered/Not Resolved]
